FAERS Safety Report 9091633 (Version 1)
Quarter: 2013Q1

REPORT INFORMATION
  Report Type: Report from Study
  Country: US (occurrence: US)
  Receive Date: 20130201
  Receipt Date: 20130201
  Transmission Date: 20140127
  Serious: No
  Sender: FDA-Public Use
  Company Number: US-ABBOTT-13P-163-1030869-00

PATIENT
  Age: 32 Year
  Sex: Female

DRUGS (3)
  1. HUMIRA [Suspect]
     Indication: PSORIASIS
     Route: 058
     Dates: start: 201211, end: 20121219
  2. HUMIRA [Suspect]
     Dates: start: 20121219, end: 20121219
  3. ACNE MEDICATION 10 [Suspect]
     Indication: ACNE

REACTIONS (1)
  - Migraine [Recovered/Resolved]
